FAERS Safety Report 7248160-1 (Version None)
Quarter: 2011Q1

REPORT INFORMATION
  Report Type: 
  Country: None (occurrence: None)
  Receive Date: 20110127
  Receipt Date: 20101130
  Transmission Date: 20110831
  Serious: Yes (Hospitalization)
  Sender: FDA-Public Use
  Company Number: US-BAYER-201034282NA

PATIENT
  Sex: Female
  Weight: 83.447 kg

DRUGS (5)
  1. PROZAC [Concomitant]
     Indication: DEPRESSION
     Dosage: UNK UNK, QD
     Dates: start: 19950101
  2. SYNTHROID [Concomitant]
     Indication: HYPOTHYROIDISM
     Dosage: UNK UNK, QD
  3. YASMIN [Suspect]
     Indication: CONTRACEPTION
     Dosage: UNK
     Route: 048
     Dates: start: 20000101, end: 20060601
  4. YASMIN [Suspect]
     Dosage: UNK
  5. MULTIVITAMIN PREPARATION + MINERAL SUPPLEMENT [Concomitant]
     Dosage: UNK UNK, QD

REACTIONS (7)
  - NAUSEA [None]
  - HAEMATOCHEZIA [None]
  - ABDOMINAL DISTENSION [None]
  - COLITIS ISCHAEMIC [None]
  - ABDOMINAL PAIN [None]
  - VOMITING [None]
  - IRRITABLE BOWEL SYNDROME [None]
